FAERS Safety Report 15509367 (Version 1)
Quarter: 2018Q4

REPORT INFORMATION
  Report Type: Spontaneous
  Country: US (occurrence: US)
  Receive Date: 20181010
  Receipt Date: 20181010
  Transmission Date: 20190205
  Serious: Yes (Death, Hospitalization)
  Sender: FDA-Public Use
  Company Number: None

PATIENT
  Age: 68 Year
  Sex: Female
  Weight: 59.4 kg

DRUGS (4)
  1. TAXOTERE [Suspect]
     Active Substance: DOCETAXEL
     Dates: end: 20090911
  2. LETROZOLE. [Concomitant]
     Active Substance: LETROZOLE
     Dates: end: 20110310
  3. ARIMIDEX [Suspect]
     Active Substance: ANASTROZOLE
     Dates: end: 20141121
  4. CYCLOPHOSPHAMIDE. [Suspect]
     Active Substance: CYCLOPHOSPHAMIDE
     Dates: end: 20090911

REACTIONS (5)
  - Acute myeloid leukaemia [None]
  - Myelodysplastic syndrome [None]
  - Stem cell transplant [None]
  - Breast angiosarcoma [None]
  - Cancer pain [None]

NARRATIVE: CASE EVENT DATE: 20170825
